FAERS Safety Report 15604093 (Version 2)
Quarter: 2018Q4

REPORT INFORMATION
  Report Type: Report from Study
  Country: None (occurrence: US)
  Receive Date: 20181109
  Receipt Date: 20181121
  Transmission Date: 20190205
  Serious: Yes (Other)
  Sender: FDA-Public Use
  Company Number: US-ABBVIE-18S-163-2542900-00

PATIENT
  Age: 66 Year
  Sex: Male
  Weight: 101.24 kg

DRUGS (1)
  1. CREON [Suspect]
     Active Substance: PANCRELIPASE AMYLASE\PANCRELIPASE LIPASE\PANCRELIPASE PROTEASE
     Indication: MALABSORPTION
     Dosage: 1 CAPSULE 3 TIMES A DAY
     Route: 048
     Dates: start: 20180918, end: 20181018

REACTIONS (19)
  - Skin cancer [Unknown]
  - Diverticulitis [Unknown]
  - Large intestine benign neoplasm [Recovered/Resolved]
  - Functional gastrointestinal disorder [Unknown]
  - Abdominal pain [Unknown]
  - Diarrhoea [Unknown]
  - Diverticulum intestinal [Unknown]
  - Melaena [Unknown]
  - Coronary artery disease [Unknown]
  - Coronary arterial stent insertion [Unknown]
  - Arthritis [Unknown]
  - Hypertension [Unknown]
  - Haemorrhoids [Unknown]
  - Colitis [Unknown]
  - Constipation [Unknown]
  - Polyp [Unknown]
  - Myocardial infarction [Unknown]
  - Gastroenteritis [Unknown]
  - Hyperlipidaemia [Unknown]

NARRATIVE: CASE EVENT DATE: 20180928
